FAERS Safety Report 16490716 (Version 1)
Quarter: 2019Q3

REPORT INFORMATION
  Report Type: Spontaneous
  Country: US (occurrence: US)
  Receive Date: 20190627
  Receipt Date: 20190627
  Transmission Date: 20191004
  Serious: No
  Sender: FDA-Public Use
  Company Number: None

PATIENT
  Age: 34 Year
  Sex: Male
  Weight: 162 kg

DRUGS (3)
  1. LORAZEPAM 1MG [Suspect]
     Active Substance: LORAZEPAM
     Indication: ANXIETY DISORDER
     Dosage: ?          QUANTITY:1 TABLET(S);?
     Route: 048
     Dates: start: 20190623, end: 20190626
  2. LORAZEPAM. [Concomitant]
     Active Substance: LORAZEPAM
  3. ATENOLOL. [Concomitant]
     Active Substance: ATENOLOL

REACTIONS (4)
  - Manufacturing materials issue [None]
  - Anxiety [None]
  - Withdrawal syndrome [None]
  - Product quality issue [None]

NARRATIVE: CASE EVENT DATE: 20190623
